FAERS Safety Report 4666552-1 (Version None)
Quarter: 2005Q2

REPORT INFORMATION
  Report Type: 
  Country: None (occurrence: None)
  Receive Date: 20050517
  Receipt Date: 20050429
  Transmission Date: 20051028
  Serious: Yes (Hospitalization, Other)
  Sender: FDA-Public Use
  Company Number: USA040465772

PATIENT
  Age: 85 Year
  Sex: Female
  Weight: 54 kg

DRUGS (6)
  1. FORTEO [Suspect]
     Indication: OSTEOPOROSIS
     Dosage: 20 UG/1 DAY
     Dates: start: 20040101
  2. EVISTA [Suspect]
     Indication: OSTEOPOROSIS
     Dosage: 60 MG/1 DAY
     Dates: start: 20031016, end: 20031120
  3. AXID [Concomitant]
  4. HYZAAR [Concomitant]
  5. SPORANOX [Concomitant]
  6. VITAMINS [Concomitant]

REACTIONS (5)
  - BARRETT'S OESOPHAGUS [None]
  - BRONCHIECTASIS [None]
  - INJECTION SITE HAEMORRHAGE [None]
  - JOINT SWELLING [None]
  - SKIN WARM [None]
